FAERS Safety Report 10398557 (Version 2)
Quarter: 2014Q3

REPORT INFORMATION
  Report Type: Report from Study
  Country: US (occurrence: US)
  Receive Date: 20140821
  Receipt Date: 20140821
  Transmission Date: 20150326
  Serious: Yes (Other)
  Sender: FDA-Public Use
  Company Number: PHEH2014US013293

PATIENT
  Age: 39 Year
  Sex: Female

DRUGS (2)
  1. EXTAVIA [Suspect]
     Active Substance: INTERFERON BETA-1B
     Indication: MULTIPLE SCLEROSIS
     Dosage: 0.062 MG (0.25 ML), QOD
     Route: 058
     Dates: start: 20140628, end: 20140628
  2. EXTAVIA [Suspect]
     Active Substance: INTERFERON BETA-1B
     Dosage: 0.25 (1ML),QOD
     Route: 058

REACTIONS (8)
  - Tremor [Not Recovered/Not Resolved]
  - Fall [Recovering/Resolving]
  - Hypoaesthesia [Recovering/Resolving]
  - Constipation [Not Recovered/Not Resolved]
  - Skin discolouration [Not Recovered/Not Resolved]
  - Malaise [Recovering/Resolving]
  - Blindness transient [Unknown]
  - Loss of consciousness [Recovering/Resolving]

NARRATIVE: CASE EVENT DATE: 20140628
